FAERS Safety Report 6144898-8 (Version None)
Quarter: 2009Q2

REPORT INFORMATION
  Report Type: 
  Country: None (occurrence: None)
  Receive Date: 20090402
  Receipt Date: 20090402
  Transmission Date: 20091009
  Serious: Yes (Life-Threatening, Hospitalization)
  Sender: FDA-Public Use
  Company Number: None

PATIENT
  Age: 65 Year
  Sex: Male

DRUGS (1)
  1. OXCARBAZEPINE [Suspect]
     Indication: PSYCHOTIC DISORDER
     Dosage: 300MG QAMHS PO
     Route: 048
     Dates: start: 20081028, end: 20081105

REACTIONS (2)
  - FALL [None]
  - HYPONATRAEMIA [None]
